FAERS Safety Report 21445332 (Version 1)
Quarter: 2022Q4

REPORT INFORMATION
  Report Type: Spontaneous
  Country: US (occurrence: None)
  Receive Date: 20221011
  Receipt Date: 20221011
  Transmission Date: 20230112
  Serious: Yes (Hospitalization)
  Sender: FDA-Public Use
  Company Number: None

PATIENT

DRUGS (2)
  1. ESTRADIOL / NORETHINDRONE ACETATE [Suspect]
     Active Substance: ESTRADIOL\NORETHINDRONE ACETATE
  2. ESTRADIOL/NORETH TB 1-0.5MG [Concomitant]

REACTIONS (3)
  - Visual impairment [None]
  - Blindness [None]
  - Migraine [None]
